FAERS Safety Report 11112188 (Version 4)
Quarter: 2015Q4

REPORT INFORMATION
  Report Type: Spontaneous
  Country: IT (occurrence: IT)
  Receive Date: 20150514
  Receipt Date: 20151103
  Transmission Date: 20160304
  Serious: Yes (Hospitalization)
  Sender: FDA-Public Use
  Company Number: IT-SUN PHARMACEUTICAL INDUSTRIES LTD-2015RR-97099

PATIENT
  Age: 60 Year
  Sex: Female

DRUGS (2)
  1. AMOXICILLIN. [Suspect]
     Active Substance: AMOXICILLIN
     Indication: BRONCHITIS
     Dosage: 1 DF, TOTAL
     Route: 048
     Dates: start: 20150222, end: 20150222
  2. FLUIMUCIL [Concomitant]
     Active Substance: ACETYLCYSTEINE
     Indication: BRONCHITIS
     Dosage: 1 DF, UNK
     Route: 048
     Dates: start: 20150221, end: 20150221

REACTIONS (2)
  - Anaphylactic reaction [Recovering/Resolving]
  - Medication error [Recovering/Resolving]

NARRATIVE: CASE EVENT DATE: 20150222
